FAERS Safety Report 7237367-5 (Version None)
Quarter: 2011Q1

REPORT INFORMATION
  Report Type: 
  Country: None (occurrence: None)
  Receive Date: 20110121
  Receipt Date: 20110114
  Transmission Date: 20110831
  Serious: Yes (Death, Hospitalization)
  Sender: FDA-Public Use
  Company Number: GB-BRISTOL-MYERS SQUIBB COMPANY-15498199

PATIENT
  Age: 62 Year
  Sex: Female

DRUGS (3)
  1. CETUXIMAB [Suspect]
     Indication: NON-SMALL CELL LUNG CANCER
     Dosage: 10 MG/KG:10SEP10-UNK DAY1,15,29 250 MG/M2:16SEP10-UNK 8,15,22,29,36 400 MG/M2:10SEP10.1 DAY
     Route: 042
     Dates: start: 20100910
  2. PACLITAXEL [Suspect]
     Indication: NON-SMALL CELL LUNG CANCER
     Dosage: OVER 3 HRS DAY 1,22
     Route: 042
     Dates: start: 20100910
  3. CARBOPLATIN [Suspect]
     Indication: NON-SMALL CELL LUNG CANCER
     Dosage: AUC =6 OVER 15-30 MNTS  DAY 1,22
     Route: 042
     Dates: start: 20100910

REACTIONS (4)
  - LUNG INFECTION [None]
  - CARDIAC ARREST [None]
  - RESPIRATORY FAILURE [None]
  - SEPSIS [None]
